FAERS Safety Report 8887650 (Version 1)
Quarter: 2012Q4

REPORT INFORMATION
  Report Type: 
  Country: FR (occurrence: PT)
  Receive Date: 20121106
  Receipt Date: 20121106
  Transmission Date: 20130627
  Serious: Yes (Hospitalization, Other)
  Sender: FDA-Public Use
  Company Number: PT-009507513-1110USA01160

PATIENT

DRUGS (5)
  1. GARDASIL [Suspect]
     Indication: PROPHYLAXIS
     Dates: start: 20110119, end: 20110119
  2. GARDASIL [Suspect]
     Indication: IMMUNISATION
     Dates: start: 20110404, end: 20110404
  3. GARDASIL [Suspect]
     Route: 030
     Dates: start: 20110901, end: 20110901
  4. MINIGESTE [Suspect]
     Indication: MENORRHAGIA
     Dosage: 1 DF, qd
     Route: 048
     Dates: start: 20090817, end: 20110817
  5. IMPLANON NXT [Suspect]
     Indication: CONTRACEPTION
     Dosage: 1 DF
     Route: 058
     Dates: start: 201103, end: 201109

REACTIONS (8)
  - Cerebral venous thrombosis [Unknown]
  - Grand mal convulsion [Recovering/Resolving]
  - Paraesthesia [Recovering/Resolving]
  - Hemiparesis [Unknown]
  - Headache [Not Recovered/Not Resolved]
  - Medication error [Unknown]
  - Anterograde amnesia [Recovered/Resolved]
  - Drug interaction [Unknown]
